FAERS Safety Report 26067137 (Version 1)
Quarter: 2025Q4

REPORT INFORMATION
  Report Type: Spontaneous
  Country: EU (occurrence: EU)
  Receive Date: 20251119
  Receipt Date: 20251119
  Transmission Date: 20260118
  Serious: Yes (Hospitalization)
  Sender: TEVA
  Company Number: None

PATIENT
  Age: 55 Year
  Sex: Female
  Weight: 64 kg

DRUGS (4)
  1. FLUOROURACIL [Suspect]
     Active Substance: FLUOROURACIL
     Indication: Anal squamous cell carcinoma
     Dosage: TIME INTERVAL: TOTAL
     Route: 042
     Dates: start: 20250819, end: 20250822
  2. FLUOROURACIL [Suspect]
     Active Substance: FLUOROURACIL
     Indication: Anal squamous cell carcinoma
     Dosage: TIME INTERVAL: TOTAL
     Route: 042
     Dates: start: 20250915, end: 20250918
  3. MITOMYCIN [Suspect]
     Active Substance: MITOMYCIN
     Indication: Anal squamous cell carcinoma
     Dosage: TIME INTERVAL: TOTAL
     Route: 042
     Dates: start: 20250915, end: 20250915
  4. MITOMYCIN [Suspect]
     Active Substance: MITOMYCIN
     Indication: Anal squamous cell carcinoma
     Dosage: TIME INTERVAL: TOTAL
     Route: 042
     Dates: start: 20250819, end: 20250819

REACTIONS (2)
  - Diarrhoea [Recovering/Resolving]
  - Mucosal inflammation [Recovering/Resolving]

NARRATIVE: CASE EVENT DATE: 20250924
